FAERS Safety Report 7985466-2 (Version None)
Quarter: 2011Q4

REPORT INFORMATION
  Report Type: 
  Country: None (occurrence: None)
  Receive Date: 20111216
  Receipt Date: 20111213
  Transmission Date: 20120403
  Serious: Yes (Other)
  Sender: FDA-Public Use
  Company Number: CHPA2011NL14986

PATIENT
  Sex: Male

DRUGS (1)
  1. NICOTINE [Suspect]
     Dosage: UNK, UNK
     Route: 062

REACTIONS (1)
  - SYNCOPE [None]
